FAERS Safety Report 10757419 (Version 1)
Quarter: 2015Q1

REPORT INFORMATION
  Report Type: Spontaneous
  Country: US (occurrence: None)
  Receive Date: 20150130
  Receipt Date: 20150130
  Transmission Date: 20150721
  Serious: Yes (Other)
  Sender: FDA-Public Use
  Company Number: BD-2015-0016

PATIENT
  Age: 34 Year
  Sex: Male

DRUGS (24)
  1. AMLODIPINE [Suspect]
     Active Substance: AMLODIPINE BESYLATE
     Indication: BLOOD PRESSURE
     Route: 048
     Dates: start: 20140310, end: 20140322
  2. TACROLIMUS (TACROLIMUS) [Concomitant]
     Active Substance: TACROLIMUS
  3. CARVEDILOL (CARVEDILOL) [Concomitant]
     Active Substance: CARVEDILOL
  4. LEVOFLOXACIN (LEVOFLOXACIN) [Concomitant]
     Active Substance: LEVOFLOXACIN
  5. PREGABALIN  (PREGABALIN) [Concomitant]
     Active Substance: PREGABALIN
  6. ACYCLOVIR (ACICLOVIR) [Concomitant]
  7. OXYCODONE HCL CONTROLLED RELEASE (OXYCODONE HYDROCHLORIDE) [Concomitant]
  8. DAPSONE (DAPSONE) [Concomitant]
  9. BUDESONIDE (BUDESONIDE) [Concomitant]
     Active Substance: BUDESONIDE
  10. INSULIN DETEMIR (INSULIN DETEMIR) [Concomitant]
     Active Substance: INSULIN DETEMIR
  11. BUPROPION (BUPROPION) [Concomitant]
     Active Substance: BUPROPION
  12. HYDROMORPHONE (HYDROMORPHONE) [Concomitant]
     Active Substance: HYDROMORPHONE
  13. PROMETHAZINE [Concomitant]
     Active Substance: PROMETHAZINE\PROMETHAZINE HYDROCHLORIDE
  14. LORAZEPAM (LORAZEPAM) [Concomitant]
     Active Substance: LORAZEPAM
  15. VALACYCLOVIR (VALACICLOVIR HYDROCHLORIDE) [Concomitant]
  16. CASPOFUNGIN (CASPONFUNGIN) [Concomitant]
  17. METHYLPREDNISOLONE (METHYLPREDNISOLONE) [Concomitant]
     Active Substance: METHYLPREDNISOLONE
  18. PREDNISONE (PREDNISONE) [Concomitant]
     Active Substance: PREDNISONE
  19. ONDANSETRON. [Suspect]
     Active Substance: ONDANSETRON
     Indication: PRODUCT USED FOR UNKNOWN INDICATION
     Dates: start: 20140311, end: 20140312
  20. URSODIOL (URSODEOXYCHOLIC ACID) [Concomitant]
  21. INSULIN LISPRO (INSULIN LISPRO) [Concomitant]
     Active Substance: INSULIN LISPRO
  22. METFORMIN [Concomitant]
     Active Substance: METFORMIN HYDROCHLORIDE
  23. PANTOPRAZOLE (PANTOPRAZOLE) [Concomitant]
     Active Substance: PANTOPRAZOLE SODIUM
  24. OXYCODONE (OXYCODONE) [Concomitant]
     Active Substance: OXYCODONE

REACTIONS (5)
  - Alanine aminotransferase increased [None]
  - Hepatotoxicity [None]
  - Headache [None]
  - Aspartate aminotransferase increased [None]
  - Drug-induced liver injury [None]
